FAERS Safety Report 14576161 (Version 1)
Quarter: 2018Q1

REPORT INFORMATION
  Report Type: Spontaneous
  Country: DE (occurrence: DE)
  Receive Date: 20180227
  Receipt Date: 20180227
  Transmission Date: 20180509
  Serious: Yes (Other)
  Sender: FDA-Public Use
  Company Number: DE-BAUSCH-BL-2018-005289

PATIENT
  Sex: Female

DRUGS (6)
  1. PREDNISOLON [Suspect]
     Active Substance: PREDNISOLONE
     Dosage: THEN DOSAGE REDUCTION OF 10MG EVERY SECOND DAY
     Route: 048
  2. FEMIBION [Concomitant]
     Active Substance: VITAMINS
     Indication: PROPHYLAXIS OF NEURAL TUBE DEFECT
     Route: 048
  3. VERAPAMIL [Concomitant]
     Active Substance: VERAPAMIL HYDROCHLORIDE
     Indication: HEADACHE
     Dosage: 320 [MG/D]/ SLOW DOSAGE INCREASE
     Route: 048
  4. PARACETAMOL [Concomitant]
     Active Substance: ACETAMINOPHEN
     Indication: HEADACHE
     Dosage: 1000 [MG/D]/ BIS 500 MG/D
     Route: 048
  5. PREDNISOLON [Suspect]
     Active Substance: PREDNISOLONE
     Indication: HEADACHE
     Dosage: 50 [MG/D]/ INITIAL 50MG7D FOR FIVE DAYS
     Route: 048
  6. IBUPROFEN. [Concomitant]
     Active Substance: IBUPROFEN
     Indication: BACK PAIN
     Route: 048
     Dates: start: 20161204, end: 20170830

REACTIONS (1)
  - Gestational diabetes [Recovered/Resolved]
